FAERS Safety Report 8074178-5 (Version None)
Quarter: 2011Q4

REPORT INFORMATION
  Report Type: 
  Country: None (occurrence: None)
  Receive Date: 20111221
  Receipt Date: 20101210
  Transmission Date: 20120403
  Serious: Yes (Other)
  Sender: FDA-Public Use
  Company Number: PHEH2009US13814

PATIENT
  Age: 84 Year
  Sex: Female

DRUGS (2)
  1. EXJADE [Suspect]
     Dosage: 1000 MG/DAY, ORAL
     Route: 048
     Dates: start: 20090110
  2. REVLIMID [Concomitant]

REACTIONS (4)
  - CATARACT [None]
  - PYREXIA [None]
  - DIARRHOEA [None]
  - DIZZINESS [None]
